FAERS Safety Report 4901304-6 (Version None)
Quarter: 2006Q1

REPORT INFORMATION
  Report Type: 
  Country: None (occurrence: None)
  Receive Date: 20060202
  Receipt Date: 20060125
  Transmission Date: 20060701
  Serious: Yes (Other)
  Sender: FDA-Public Use
  Company Number: 200515036BCC

PATIENT
  Age: 34 Year
  Sex: Male
  Weight: 74.8435 kg

DRUGS (7)
  1. ALEVE [Suspect]
     Indication: JOINT STIFFNESS
     Dosage: SEE IMAGE, ORAL
     Route: 048
     Dates: start: 20050101
  2. ALEVE [Suspect]
     Indication: MUSCLE TIGHTNESS
     Dosage: SEE IMAGE, ORAL
     Route: 048
     Dates: start: 20050101
  3. ALEVE [Suspect]
     Indication: MYALGIA
     Dosage: SEE IMAGE, ORAL
     Route: 048
     Dates: start: 20050101
  4. ALEVE [Suspect]
     Indication: JOINT STIFFNESS
     Dosage: SEE IMAGE, ORAL
     Route: 048
     Dates: start: 20051211
  5. ALEVE [Suspect]
     Indication: MUSCLE TIGHTNESS
     Dosage: SEE IMAGE, ORAL
     Route: 048
     Dates: start: 20051211
  6. ALEVE [Suspect]
     Indication: MYALGIA
     Dosage: SEE IMAGE, ORAL
     Route: 048
     Dates: start: 20051211
  7. ALEVE [Suspect]

REACTIONS (5)
  - BLOOD PRESSURE INCREASED [None]
  - CONVULSION [None]
  - EPILEPSY [None]
  - MUSCLE TIGHTNESS [None]
  - PYREXIA [None]
